FAERS Safety Report 24839078 (Version 1)
Quarter: 2025Q1

REPORT INFORMATION
  Report Type: Spontaneous
  Country: AU (occurrence: AU)
  Receive Date: 20250114
  Receipt Date: 20250114
  Transmission Date: 20250409
  Serious: Yes (Hospitalization, Other)
  Sender: CHEPLAPHARM
  Company Number: AU-CHEPLA-2025000389

PATIENT
  Age: 41 Year
  Sex: Female

DRUGS (7)
  1. HYDROXYUREA [Suspect]
     Active Substance: HYDROXYUREA
     Indication: Differentiation syndrome
  2. HYDROXYUREA [Suspect]
     Active Substance: HYDROXYUREA
     Indication: Differentiation syndrome
  3. TRETINOIN [Suspect]
     Active Substance: TRETINOIN
     Indication: Acute promyelocytic leukaemia
  4. ARSENIC TRIOXIDE [Suspect]
     Active Substance: ARSENIC TRIOXIDE
     Indication: Acute promyelocytic leukaemia
  5. PREDNISOLONE [Suspect]
     Active Substance: PREDNISOLONE
     Indication: Differentiation syndrome
  6. DEXAMETHASONE [Suspect]
     Active Substance: DEXAMETHASONE
     Indication: Differentiation syndrome
  7. DEXAMETHASONE [Suspect]
     Active Substance: DEXAMETHASONE
     Indication: Differentiation syndrome
     Dosage: WEANED TO 4 MG DAILY AND CEASED ON DAY 28?DAILY DOSE: 4 MILLIGRAM

REACTIONS (2)
  - Bone marrow necrosis [Recovered/Resolved]
  - Off label use [Unknown]
